FAERS Safety Report 11887058 (Version 1)
Quarter: 2016Q1

REPORT INFORMATION
  Report Type: Spontaneous
  Country: GB (occurrence: GB)
  Receive Date: 20160104
  Receipt Date: 20160104
  Transmission Date: 20160526
  Serious: Yes (Death)
  Sender: FDA-Public Use
  Company Number: GB-TEVA-622891ISR

PATIENT
  Age: 29 Year
  Sex: Male

DRUGS (3)
  1. METHOXETAMINE [Suspect]
     Active Substance: METHOXETAMINE
     Route: 065
  2. METHADONE [Suspect]
     Active Substance: METHADONE HYDROCHLORIDE
     Indication: OVERDOSE
     Route: 065
  3. MIRTAZAPINE. [Suspect]
     Active Substance: MIRTAZAPINE
     Indication: OVERDOSE
     Route: 065

REACTIONS (1)
  - Accidental overdose [Fatal]
